FAERS Safety Report 4801810-9 (Version None)
Quarter: 2005Q4

REPORT INFORMATION
  Report Type: 
  Country: None (occurrence: None)
  Receive Date: 20051014
  Receipt Date: 20051014
  Transmission Date: 20060501
  Serious: Yes (Hospitalization)
  Sender: FDA-Public Use
  Company Number: None

PATIENT
  Age: 26 Year
  Sex: Female
  Weight: 82.5547 kg

DRUGS (1)
  1. FERRLECIT [Suspect]
     Indication: ANAEMIA
     Dosage: 125 MG STAT IV DRIP
     Route: 041
     Dates: start: 20051013, end: 20051013

REACTIONS (8)
  - BACK PAIN [None]
  - DYSPNOEA [None]
  - HEADACHE [None]
  - HEART RATE DECREASED [None]
  - HYPOAESTHESIA [None]
  - INFUSION RELATED REACTION [None]
  - NASAL CONGESTION [None]
  - VOMITING [None]
